FAERS Safety Report 4424291-6 (Version None)
Quarter: 2004Q3

REPORT INFORMATION
  Report Type: 
  Country: None (occurrence: None)
  Receive Date: 20040806
  Receipt Date: 20040806
  Transmission Date: 20050211
  Serious: Yes (Other)
  Sender: FDA-Public Use
  Company Number: None

PATIENT
  Sex: Female
  Weight: 49.8957 kg

DRUGS (6)
  1. PROVIGIL [Suspect]
     Indication: BULIMIA NERVOSA
     Dosage: 200 MG  Q AM  AND Q   ORAL
     Route: 048
     Dates: start: 20040710, end: 20040713
  2. PROVIGIL [Suspect]
     Indication: DEPRESSION
     Dosage: 200 MG  Q AM  AND Q   ORAL
     Route: 048
     Dates: start: 20040710, end: 20040713
  3. PROVIGIL [Suspect]
     Indication: SEDATION
     Dosage: 200 MG  Q AM  AND Q   ORAL
     Route: 048
     Dates: start: 20040710, end: 20040713
  4. VISTARIL [Concomitant]
  5. PROZAC [Concomitant]
  6. ATIVAN [Concomitant]

REACTIONS (1)
  - HYPOMANIA [None]
